FAERS Safety Report 25107756 (Version 1)
Quarter: 2025Q1

REPORT INFORMATION
  Report Type: Spontaneous
  Country: US (occurrence: US)
  Receive Date: 20250322
  Receipt Date: 20250322
  Transmission Date: 20250409
  Serious: No
  Sender: SANOFI AVENTIS
  Company Number: US-SA-2025SA078366

PATIENT
  Age: 65 Year
  Sex: Female
  Weight: 79.09 kg

DRUGS (19)
  1. DUPIXENT [Suspect]
     Active Substance: DUPILUMAB
     Indication: Asthma
     Route: 058
  2. LEVOTHYROXINE SODIUM [Concomitant]
     Active Substance: LEVOTHYROXINE SODIUM
  3. FLUCONAZOLE [Concomitant]
     Active Substance: FLUCONAZOLE
  4. MONTELUKAST SODIUM [Concomitant]
     Active Substance: MONTELUKAST SODIUM
  5. ALBUTEROL SULFATE [Concomitant]
     Active Substance: ALBUTEROL SULFATE
  6. LINZESS [Concomitant]
     Active Substance: LINACLOTIDE
  7. ESTRADIOL [Concomitant]
     Active Substance: ESTRADIOL
  8. PREDNISONE [Concomitant]
     Active Substance: PREDNISONE
  9. HOMATROPINE METHYLBROMIDE\HYDROCODONE BITARTRATE [Concomitant]
     Active Substance: HOMATROPINE METHYLBROMIDE\HYDROCODONE BITARTRATE
  10. AZITHROMYCIN [Concomitant]
     Active Substance: AZITHROMYCIN
  11. NYSTATIN [Concomitant]
     Active Substance: NYSTATIN
  12. HYDROCHLOROTHIAZIDE [Concomitant]
     Active Substance: HYDROCHLOROTHIAZIDE
  13. BUDESONIDE\FORMOTEROL [Concomitant]
     Active Substance: BUDESONIDE\FORMOTEROL
  14. DOXYCYCLINE HYCLATE [Concomitant]
     Active Substance: DOXYCYCLINE HYCLATE
  15. PAXLOVID [Concomitant]
     Active Substance: NIRMATRELVIR\RITONAVIR
  16. PROMETHAZINE DM [Concomitant]
     Active Substance: DEXTROMETHORPHAN HYDROBROMIDE\PROMETHAZINE HYDROCHLORIDE
  17. CEFDINIR [Concomitant]
     Active Substance: CEFDINIR
  18. LANSOPRAZOLE [Concomitant]
     Active Substance: LANSOPRAZOLE
  19. FLUTICASONE PROPIONATE [Concomitant]
     Active Substance: FLUTICASONE PROPIONATE

REACTIONS (3)
  - Body temperature abnormal [Recovering/Resolving]
  - Pain [Recovering/Resolving]
  - Headache [Recovering/Resolving]

NARRATIVE: CASE EVENT DATE: 20250304
